FAERS Safety Report 14067052 (Version 1)
Quarter: 2017Q4

REPORT INFORMATION
  Report Type: Report from Study
  Country: US (occurrence: US)
  Receive Date: 20171009
  Receipt Date: 20171009
  Transmission Date: 20180321
  Serious: Yes (Other)
  Sender: FDA-Public Use
  Company Number: US-ARIAD PHARMACEUTICALS, INC-2015US005837

PATIENT
  Age: 42 Year
  Sex: Female

DRUGS (2)
  1. ICLUSIG [Suspect]
     Active Substance: PONATINIB
     Dosage: 45 MG, QD
     Route: 048
  2. ICLUSIG [Suspect]
     Active Substance: PONATINIB
     Indication: CHRONIC MYELOID LEUKAEMIA
     Dosage: 45 MG, QD
     Route: 048
     Dates: start: 20141114

REACTIONS (20)
  - Insomnia [Unknown]
  - Anaemia [Not Recovered/Not Resolved]
  - Back pain [Unknown]
  - Nausea [Unknown]
  - Oedema peripheral [Unknown]
  - Dizziness [Unknown]
  - Balance disorder [Unknown]
  - Arthralgia [Unknown]
  - Pyrexia [Unknown]
  - Myalgia [Unknown]
  - Headache [Unknown]
  - Constipation [Unknown]
  - Blood pressure abnormal [Unknown]
  - Abdominal tenderness [Not Recovered/Not Resolved]
  - Diarrhoea [Unknown]
  - White blood cell count increased [Unknown]
  - Paraesthesia [Unknown]
  - Abdominal distension [Unknown]
  - Muscular weakness [Unknown]
  - Pain [Unknown]

NARRATIVE: CASE EVENT DATE: 20170918
